FAERS Safety Report 16118608 (Version 3)
Quarter: 2019Q2

REPORT INFORMATION
  Report Type: Report from Study
  Country: US (occurrence: US)
  Receive Date: 20190326
  Receipt Date: 20190402
  Transmission Date: 20190711
  Serious: Yes (Death)
  Sender: FDA-Public Use
  Company Number: US-ROCHE-2288397

PATIENT
  Age: 56 Year
  Sex: Female
  Weight: 72.7 kg

DRUGS (16)
  1. LIDOCAINE. [Concomitant]
     Active Substance: LIDOCAINE
     Route: 061
     Dates: start: 20170906
  2. PRILOSEC [Concomitant]
     Active Substance: OMEPRAZOLE MAGNESIUM
     Indication: GASTROOESOPHAGEAL REFLUX DISEASE
     Route: 048
     Dates: start: 20180523
  3. GABAPENTIN. [Concomitant]
     Active Substance: GABAPENTIN
     Indication: NEUROPATHY PERIPHERAL
     Route: 048
     Dates: start: 20180511
  4. COMPAZINE [Concomitant]
     Active Substance: PROCHLORPERAZINE MALEATE
     Indication: VOMITING
     Route: 048
     Dates: start: 20170828
  5. ADVIL [Concomitant]
     Active Substance: IBUPROFEN
     Indication: PAIN
     Route: 048
     Dates: start: 20180119
  6. DIPHENHYDRAMINE. [Concomitant]
     Active Substance: DIPHENHYDRAMINE
     Route: 065
     Dates: start: 20181008
  7. ATIVAN [Concomitant]
     Active Substance: LORAZEPAM
     Indication: ANXIETY
     Route: 048
     Dates: start: 20180710
  8. BEVACIZUMAB. [Suspect]
     Active Substance: BEVACIZUMAB
     Indication: COLORECTAL CANCER METASTATIC
     Dosage: MOST RECENT DOSE (562.5 UNIT NOT REPORTED) ON 29/OCT/2018
     Route: 042
     Dates: start: 20181008, end: 20181112
  9. DIPHENHYDRAMINE HCL [Concomitant]
     Active Substance: DIPHENHYDRAMINE HYDROCHLORIDE
     Indication: NAUSEA
     Route: 048
     Dates: start: 20180105
  10. ANBESOL COLD SORE THERAPY [Concomitant]
     Active Substance: ALLANTOIN\BENZOCAINE\CAMPHOR (SYNTHETIC)\PETROLATUM
     Indication: ORAL HERPES
     Route: 061
     Dates: start: 20180119
  11. ZOFRAN [Concomitant]
     Active Substance: ONDANSETRON HYDROCHLORIDE
     Indication: NAUSEA
     Route: 048
     Dates: start: 20170828
  12. PREMARIN [Concomitant]
     Active Substance: ESTROGENS, CONJUGATED
     Indication: MENOPAUSE
     Route: 048
     Dates: start: 20171120
  13. ONDANSETRON [Concomitant]
     Active Substance: ONDANSETRON
     Route: 065
     Dates: start: 20181008
  14. ATEZOLIZUMAB. [Suspect]
     Active Substance: ATEZOLIZUMAB
     Indication: COLORECTAL CANCER METASTATIC
     Dosage: MOST RECENT DOSE (1200 UNIT NOT REPORTED) ON 29/OCT/2018
     Route: 042
     Dates: start: 20181008, end: 20181112
  15. IMPRIME PGG [Suspect]
     Active Substance: INVESTIGATIONAL PRODUCT
     Indication: COLORECTAL CANCER METASTATIC
     Dosage: MOST RECENT DOSE (301 UNITS NOT REPORTED) ON 05/NOV/2018
     Route: 042
     Dates: start: 20181008, end: 20181112
  16. ACETAMINOPHEN. [Concomitant]
     Active Substance: ACETAMINOPHEN
     Route: 065
     Dates: start: 20181008

REACTIONS (1)
  - Death [Fatal]

NARRATIVE: CASE EVENT DATE: 20190201
